FAERS Safety Report 7977695-9 (Version None)
Quarter: 2011Q4

REPORT INFORMATION
  Report Type: 
  Country: None (occurrence: None)
  Receive Date: 20111214
  Receipt Date: 20111128
  Transmission Date: 20120403
  Serious: No
  Sender: FDA-Public Use
  Company Number: US-AMGEN-USASP2011062571

PATIENT
  Age: 32 Year
  Sex: Male

DRUGS (1)
  1. ENBREL [Suspect]
     Indication: RHEUMATOID ARTHRITIS
     Dosage: 50 MG, QWK
     Dates: start: 20110825

REACTIONS (5)
  - OCULAR HYPERAEMIA [None]
  - VISION BLURRED [None]
  - PURULENT DISCHARGE [None]
  - EYE DISCHARGE [None]
  - EYE PAIN [None]
